FAERS Safety Report 15808041 (Version 1)
Quarter: 2019Q1

REPORT INFORMATION
  Report Type: Report from Study
  Country: None (occurrence: RO)
  Receive Date: 20190110
  Receipt Date: 20190110
  Transmission Date: 20190417
  Serious: Yes (Death)
  Sender: FDA-Public Use
  Company Number: RO-ABBVIE-19S-135-2619895-00

PATIENT
  Age: 71 Year
  Sex: Female

DRUGS (5)
  1. ENAP [Concomitant]
     Active Substance: ENALAPRIL
     Indication: HYPERTENSION
     Route: 048
     Dates: start: 20130923, end: 20181228
  2. FOLIC ACID. [Concomitant]
     Active Substance: FOLIC ACID
     Indication: ANAEMIA MACROCYTIC
     Route: 048
     Dates: start: 20150918, end: 20181228
  3. DUODOPA [Suspect]
     Active Substance: CARBIDOPA\LEVODOPA
     Indication: PARKINSON^S DISEASE
     Dosage: DM=5.00??DC=1.00??ED=0.50
     Route: 050
     Dates: start: 20150918, end: 20181228
  4. VITAMIN B12 [Concomitant]
     Active Substance: CYANOCOBALAMIN
     Indication: ANAEMIA MACROCYTIC
     Route: 050
     Dates: start: 20150918, end: 20181228
  5. SORBIFER DURULES [Concomitant]
     Active Substance: FERROUS SULFATE
     Indication: ANAEMIA MACROCYTIC
     Route: 048
     Dates: start: 20150918, end: 20181228

REACTIONS (2)
  - Cardiopulmonary failure [Fatal]
  - Fatigue [Unknown]

NARRATIVE: CASE EVENT DATE: 20181228
